FAERS Safety Report 5172417-1 (Version None)
Quarter: 2006Q4

REPORT INFORMATION
  Report Type: 
  Country: None (occurrence: None)
  Receive Date: 20061213
  Receipt Date: 20060804
  Transmission Date: 20070319
  Serious: No
  Sender: FDA-Public Use
  Company Number: US-AMGEN-KDL189123

PATIENT
  Sex: Male

DRUGS (7)
  1. ENBREL [Suspect]
     Indication: PSORIATIC ARTHROPATHY
     Route: 058
     Dates: start: 20060621
  2. ENBREL [Suspect]
     Indication: PSORIASIS
  3. ASPIRIN [Concomitant]
  4. DILTIAZEM HCL [Concomitant]
  5. PRINIVIL [Concomitant]
  6. METHOTREXATE [Concomitant]
  7. PREVACID [Concomitant]

REACTIONS (1)
  - INJECTION SITE REACTION [None]
